FAERS Safety Report 5475604-8 (Version None)
Quarter: 2007Q4

REPORT INFORMATION
  Report Type: 
  Country: None (occurrence: None)
  Receive Date: 20071003
  Receipt Date: 20070319
  Transmission Date: 20080405
  Serious: No
  Sender: FDA-Public Use
  Company Number: US-KINGPHARMUSA00001-K200700317

PATIENT

DRUGS (3)
  1. SONATA [Suspect]
     Indication: INSOMNIA
     Dosage: 5 MG, SINGLE AT BEDTIME
     Route: 048
     Dates: start: 20070317, end: 20070317
  2. MUCINEX [Concomitant]
     Indication: RHINORRHOEA
     Dosage: 1200 MG, PRN
     Route: 048
  3. PSEUDOEPHEDRINE HCL [Concomitant]
     Indication: NASOPHARYNGITIS
     Dosage: 30 MG, UNK
     Route: 048

REACTIONS (1)
  - DIPLOPIA [None]
